FAERS Safety Report 5056683-9 (Version None)
Quarter: 2006Q2

REPORT INFORMATION
  Report Type: 
  Country: None (occurrence: None)
  Receive Date: 20060616
  Receipt Date: 20060320
  Transmission Date: 20061013
  Serious: No
  Sender: FDA-Public Use
  Company Number: 2006US000593

PATIENT
  Age: 51 Year
  Sex: Male
  Weight: 107.9 kg

DRUGS (4)
  1. VESICARE [Suspect]
     Indication: INCONTINENCE
     Dosage: SEE IMAGE
     Route: 048
     Dates: start: 20051005, end: 20051001
  2. VESICARE [Suspect]
     Indication: INCONTINENCE
     Dosage: SEE IMAGE
     Route: 048
     Dates: start: 20051001, end: 20051015
  3. LOTREL [Concomitant]
  4. NASONEX [Concomitant]

REACTIONS (3)
  - CONSTIPATION [None]
  - INCONTINENCE [None]
  - THINKING ABNORMAL [None]
